FAERS Safety Report 5103042-6 (Version None)
Quarter: 2006Q3

REPORT INFORMATION
  Report Type: 
  Country: None (occurrence: None)
  Receive Date: 20060908
  Receipt Date: 20060901
  Transmission Date: 20061208
  Serious: Yes (Life-Threatening, Hospitalization, Other)
  Sender: FDA-Public Use
  Company Number: 2006S1000165

PATIENT
  Age: 6 Day
  Sex: Male

DRUGS (11)
  1. INOMAX [Suspect]
     Indication: LUNG DISORDER
     Dosage: 5 PPM; CONT INH
     Route: 055
     Dates: start: 20060810
  2. INOMAX [Suspect]
     Indication: PROPHYLAXIS
     Dosage: 5 PPM; CONT INH
     Route: 055
     Dates: start: 20060810
  3. AMPICILLIN [Concomitant]
  4. AMIKACIN [Concomitant]
  5. MICONAZOLE [Concomitant]
  6. FENTANYL [Concomitant]
  7. INSULIN (INSULIN) [Concomitant]
  8. CAFFEINE (CAFFEINE) [Concomitant]
  9. FLUCONAZOLE [Concomitant]
  10. NYSTATIN [Concomitant]
  11. DOPAMINE [Concomitant]

REACTIONS (3)
  - NECROTISING ENTEROCOLITIS NEONATAL [None]
  - PATENT DUCTUS ARTERIOSUS [None]
  - SMALL INTESTINAL PERFORATION [None]
